FAERS Safety Report 8586360-9 (Version None)
Quarter: 2012Q3

REPORT INFORMATION
  Report Type: 
  Country: None (occurrence: None)
  Receive Date: 20120810
  Receipt Date: 20120806
  Transmission Date: 20120928
  Serious: Yes (Death, Life-Threatening, Disabling, Other)
  Sender: FDA-Public Use
  Company Number: BR-ASTRAZENECA-2012SE55750

PATIENT
  Age: 25660 Day
  Sex: Female
  Weight: 61 kg

DRUGS (12)
  1. OMEPRAZOLE [Concomitant]
     Indication: ULCER
     Route: 042
     Dates: start: 20120622, end: 20120630
  2. LOSARTAN POTASSIUM [Concomitant]
     Indication: HYPERTENSION
     Route: 048
     Dates: start: 20120622, end: 20120626
  3. SUFENTANIL CITRATE [Concomitant]
     Indication: INDUCTION OF ANAESTHESIA
     Dosage: 50 MCG/ML, 5 MCG ONCE
     Route: 042
     Dates: start: 20120626, end: 20120626
  4. DEXMEDETOMODINE HYDROCHLORIDE [Interacting]
     Indication: SEDATIVE THERAPY
     Dosage: 100MCG/ML, 63.4 MCG VIA CONTINUOUS INFUSION
     Route: 042
     Dates: start: 20120626, end: 20120626
  5. METRONIDAZOLE [Concomitant]
     Indication: ANTIBIOTIC THERAPY
     Dosage: 5 MG/ML 500 MG THREE TIMES A DAY
     Route: 042
     Dates: start: 20120622, end: 20120630
  6. DIPYRONE INJ [Concomitant]
     Indication: ANALGESIC THERAPY
     Dosage: 500 MG/ML, 2 G EVERY FOUR HOURS
     Route: 042
     Dates: start: 20120622, end: 20120630
  7. NPH INSULIN [Concomitant]
     Indication: HYPOGLYCAEMIA
     Route: 058
     Dates: start: 20120622, end: 20120630
  8. DIGOXIN [Concomitant]
     Indication: CARDIOMYOPATHY
     Route: 048
     Dates: start: 20120622, end: 20120625
  9. LIDOCAINE [Concomitant]
     Indication: LOCAL ANAESTHESIA
     Dosage: 20 MG/ML, 60 MG ONCE
     Route: 042
     Dates: start: 20120626, end: 20120626
  10. CIPROFLOXACIN [Concomitant]
     Indication: ANTIBIOTIC THERAPY
     Dosage: 2 MG/ML, 400 MG TWO TIMES A DAY
     Route: 042
     Dates: start: 20120622, end: 20120630
  11. ENOXAPARIN [Concomitant]
     Indication: ANTICOAGULANT THERAPY
     Route: 058
     Dates: start: 20120622, end: 20120630
  12. DIPRIVAN [Suspect]
     Indication: GENERAL ANAESTHESIA
     Dosage: 99 MG VIA TARGET CONTROLLED INTRAVENOUS INFUSION
     Route: 042
     Dates: start: 20120626, end: 20120626

REACTIONS (3)
  - DRUG INTERACTION [None]
  - BRADYCARDIA [None]
  - CARDIO-RESPIRATORY ARREST [None]
